FAERS Safety Report 9989583 (Version 2)
Quarter: 2014Q1

REPORT INFORMATION
  Report Type: Report from Study
  Country: US (occurrence: US)
  Receive Date: 20140310
  Receipt Date: 20140310
  Transmission Date: 20141002
  Serious: No
  Sender: FDA-Public Use
  Company Number: US-ABBVIE-13P-163-1103355-00

PATIENT
  Age: 25 Year
  Sex: Female

DRUGS (3)
  1. HUMIRA [Suspect]
     Indication: CROHN^S DISEASE
     Dates: start: 20130509
  2. 6-MP [Concomitant]
     Indication: PRODUCT USED FOR UNKNOWN INDICATION
  3. IRON [Concomitant]
     Indication: CROHN^S DISEASE

REACTIONS (1)
  - Urticaria [Not Recovered/Not Resolved]
